FAERS Safety Report 8368926-4 (Version None)
Quarter: 2012Q2

REPORT INFORMATION
  Report Type: 
  Country: None (occurrence: None)
  Receive Date: 20120516
  Receipt Date: 20120427
  Transmission Date: 20120825
  Serious: Yes (Other)
  Sender: FDA-Public Use
  Company Number: 2012-215

PATIENT
  Age: 51 Year
  Sex: Female

DRUGS (5)
  1. ZOPICLONE (ZOPICLONE) [Concomitant]
  2. ENALAPRIL MALEATE [Concomitant]
  3. LAMOTRIGINE [Concomitant]
  4. MIRTAZAPINE [Concomitant]
  5. CLOZAPINE [Suspect]
     Indication: SCHIZOPHRENIA, PARANOID TYPE
     Dosage: 925 MG, QD, ORAL
     Route: 048

REACTIONS (6)
  - DIZZINESS [None]
  - PSEUDOPHAEOCHROMOCYTOMA [None]
  - HYPERTENSIVE CRISIS [None]
  - ANXIETY [None]
  - TACHYCARDIA [None]
  - WEIGHT DECREASED [None]
